FAERS Safety Report 5562947-2 (Version None)
Quarter: 2007Q4

REPORT INFORMATION
  Report Type: 
  Country: None (occurrence: None)
  Receive Date: 20071212
  Receipt Date: 20071212
  Transmission Date: 20080405
  Serious: Yes (Hospitalization)
  Sender: FDA-Public Use
  Company Number: None

PATIENT
  Age: 66 Year
  Sex: Male

DRUGS (2)
  1. ACETAMINOPHEN [Suspect]
     Indication: DEEP VEIN THROMBOSIS
     Dosage: 500MG   PO
     Route: 048
     Dates: start: 20071022, end: 20071105
  2. WARFARIN SODIUM [Suspect]
     Indication: DEEP VEIN THROMBOSIS
     Dates: start: 20061130, end: 20071105

REACTIONS (2)
  - HEADACHE [None]
  - INTERNATIONAL NORMALISED RATIO INCREASED [None]
